FAERS Safety Report 10150158 (Version 1)
Quarter: 2014Q2

REPORT INFORMATION
  Report Type: Spontaneous
  Country: FR (occurrence: FR)
  Receive Date: 20140502
  Receipt Date: 20140502
  Transmission Date: 20141212
  Serious: Yes (Hospitalization)
  Sender: FDA-Public Use
  Company Number: FR-GLAXOSMITHKLINE-B0989065A

PATIENT
  Age: 80 Year
  Sex: Female

DRUGS (14)
  1. LAMICTAL [Suspect]
     Indication: PRODUCT USED FOR UNKNOWN INDICATION
     Dosage: 50MG AT NIGHT
     Route: 048
     Dates: start: 20140113, end: 20140303
  2. EFFEXOR [Suspect]
     Indication: PRODUCT USED FOR UNKNOWN INDICATION
     Dosage: 75MG IN THE MORNING
     Route: 048
     Dates: start: 20131211, end: 20140302
  3. NUTRITIONAL SUPPLEMENT UNSPECIFIED [Suspect]
     Indication: PRODUCT USED FOR UNKNOWN INDICATION
     Route: 048
     Dates: start: 20140108, end: 20140314
  4. OMEPRAZOLE [Concomitant]
     Route: 065
  5. NORMACOL [Concomitant]
     Route: 065
  6. ZOPICLONE [Concomitant]
     Route: 065
  7. THERALENE [Concomitant]
     Route: 065
  8. LEVOTHYROX [Concomitant]
     Route: 065
  9. LEPTICUR [Concomitant]
     Route: 065
  10. FORTIMEL [Concomitant]
     Route: 065
  11. LINOLEIC ACID [Concomitant]
     Route: 065
  12. VITAMIN E [Concomitant]
     Route: 065
  13. NOZINAN [Concomitant]
     Route: 065
  14. PARACETAMOL [Concomitant]
     Route: 065

REACTIONS (9)
  - Urticaria [Recovered/Resolved]
  - Rash papular [Recovered/Resolved]
  - Pruritus [Recovered/Resolved]
  - Rash maculo-papular [Recovered/Resolved]
  - Oral disorder [Recovered/Resolved]
  - Pyrexia [Recovered/Resolved]
  - Toxic skin eruption [Recovered/Resolved]
  - Scab [Recovered/Resolved]
  - Incorrect dose administered [Unknown]
